FAERS Safety Report 19236687 (Version 1)
Quarter: 2021Q2

REPORT INFORMATION
  Report Type: Spontaneous
  Country: US (occurrence: US)
  Receive Date: 20210507
  Receipt Date: 20210507
  Transmission Date: 20210717
  Serious: Yes (Death)
  Sender: FDA-Public Use
  Company Number: None

PATIENT
  Age: 76 Year
  Sex: Male

DRUGS (1)
  1. STIVARGA [Suspect]
     Active Substance: REGORAFENIB
     Indication: HEPATOCELLULAR CARCINOMA
     Dosage: SEE EVENT?DAILY FOR 21 DAYS THEN OFF 7 DAYS
     Route: 048
     Dates: start: 202103, end: 20210506

REACTIONS (1)
  - Death [None]

NARRATIVE: CASE EVENT DATE: 20210506
